FAERS Safety Report 9384609 (Version 2)
Quarter: 2015Q3

REPORT INFORMATION
  Report Type: Spontaneous
  Country: US (occurrence: US)
  Receive Date: 20130705
  Receipt Date: 20150908
  Transmission Date: 20151125
  Serious: No
  Sender: FDA-Public Use
  Company Number: US-BAYER-2013-081590

PATIENT
  Sex: Female
  Weight: 145.13 kg

DRUGS (5)
  1. BETASERON [Suspect]
     Active Substance: INTERFERON BETA-1B
     Dosage: 0.25 MG, QOD
     Route: 058
  2. AMPYRA [Suspect]
     Active Substance: DALFAMPRIDINE
  3. PROVIGIL [Concomitant]
     Active Substance: MODAFINIL
     Dosage: 200 MG, UNK
  4. AMANTADINE [Concomitant]
     Active Substance: AMANTADINE
     Dosage: 100 MG, UNK
  5. BACLOFEN. [Concomitant]
     Active Substance: BACLOFEN
     Dosage: 10 MG, UNK

REACTIONS (2)
  - Restless legs syndrome [Unknown]
  - Pre-existing condition improved [Unknown]
